FAERS Safety Report 22963467 (Version 6)
Quarter: 2023Q4

REPORT INFORMATION
  Report Type: Spontaneous
  Country: CA (occurrence: CA)
  Receive Date: 20230920
  Receipt Date: 20231221
  Transmission Date: 20240109
  Serious: Yes (Other)
  Sender: FDA-Public Use
  Company Number: CA-CELLTRION INC.-2023CA017198

PATIENT

DRUGS (7)
  1. INFLECTRA [Suspect]
     Active Substance: INFLIXIMAB-DYYB
     Indication: Colitis ulcerative
     Dosage: 5 MG/KG Q 0, 2, 6 WEEKS THEN EVERY 8 WEEKS
     Route: 042
     Dates: start: 20230721
  2. INFLECTRA [Suspect]
     Active Substance: INFLIXIMAB-DYYB
     Dosage: 10 MG/KG
     Route: 042
     Dates: start: 20230822
  3. INFLECTRA [Suspect]
     Active Substance: INFLIXIMAB-DYYB
     Dosage: 295 MG 4 WEEKS AFTER LAST TREATMENT
     Route: 042
     Dates: start: 20230919
  4. INFLECTRA [Suspect]
     Active Substance: INFLIXIMAB-DYYB
     Dosage: 5MG/KG EVERY 8 WEEKS
     Route: 042
     Dates: start: 20231114
  5. INFLECTRA [Suspect]
     Active Substance: INFLIXIMAB-DYYB
     Dosage: 5MG/KG EVERY 4 WEEKS (300 MG, AFTER 4 WEEKS)
     Route: 042
     Dates: start: 20231212
  6. MESALAMINE [Concomitant]
     Active Substance: MESALAMINE
     Dosage: UNK
  7. REMICADE [Concomitant]
     Active Substance: INFLIXIMAB
     Dosage: UNK

REACTIONS (2)
  - Condition aggravated [Recovering/Resolving]
  - Off label use [Unknown]

NARRATIVE: CASE EVENT DATE: 20230829
